FAERS Safety Report 24594860 (Version 1)
Quarter: 2024Q4

REPORT INFORMATION
  Report Type: Report from Study
  Country: US (occurrence: US)
  Receive Date: 20241108
  Receipt Date: 20241108
  Transmission Date: 20250115
  Serious: Yes (Other)
  Sender: ALEXION PHARMACEUTICALS
  Company Number: US-ALXN-202410USA029275US

PATIENT

DRUGS (8)
  1. STRENSIQ [Suspect]
     Active Substance: ASFOTASE ALFA
     Dosage: 40 MILLIGRAM
     Route: 065
  2. STRENSIQ [Suspect]
     Active Substance: ASFOTASE ALFA
     Dosage: 40 MILLIGRAM
  3. STRENSIQ [Suspect]
     Active Substance: ASFOTASE ALFA
     Dosage: 40 MILLIGRAM
     Route: 065
  4. STRENSIQ [Suspect]
     Active Substance: ASFOTASE ALFA
     Dosage: 40 MILLIGRAM
  5. STRENSIQ [Suspect]
     Active Substance: ASFOTASE ALFA
     Dosage: 80 MILLIGRAM
     Route: 065
  6. STRENSIQ [Suspect]
     Active Substance: ASFOTASE ALFA
     Dosage: 80 MILLIGRAM
  7. STRENSIQ [Suspect]
     Active Substance: ASFOTASE ALFA
     Dosage: 80 MILLIGRAM
     Route: 065
  8. STRENSIQ [Suspect]
     Active Substance: ASFOTASE ALFA
     Dosage: 80 MILLIGRAM

REACTIONS (3)
  - Mental impairment [Unknown]
  - Arthralgia [Unknown]
  - Blood potassium increased [Unknown]
